FAERS Safety Report 9026098 (Version 1)
Quarter: 2013Q1

REPORT INFORMATION
  Report Type: Spontaneous
  Country: DE (occurrence: DE)
  Receive Date: 20130122
  Receipt Date: 20130122
  Transmission Date: 20140127
  Serious: Yes (Other)
  Sender: FDA-Public Use
  Company Number: DE-ROCHE-1179539

PATIENT
  Age: 58 Year
  Sex: 0

DRUGS (3)
  1. BEVACIZUMAB [Suspect]
     Indication: GLIOBLASTOMA
     Route: 065
  2. IRINOTECAN [Suspect]
     Indication: GLIOBLASTOMA
     Route: 065
  3. TEMOZOLOMIDE [Concomitant]
     Route: 065

REACTIONS (4)
  - Hypersensitivity [Unknown]
  - Hemiparesis [Unknown]
  - Aphasia [Unknown]
  - Neoplasm progression [Unknown]
